FAERS Safety Report 19059063 (Version 12)
Quarter: 2022Q4

REPORT INFORMATION
  Report Type: Report from Study
  Country: US (occurrence: US)
  Receive Date: 20210325
  Receipt Date: 20221031
  Transmission Date: 20230113
  Serious: Yes (Other)
  Sender: FDA-Public Use
  Company Number: NVSC2021US061828

PATIENT
  Age: 58 Year
  Sex: Male

DRUGS (1)
  1. KESIMPTA [Suspect]
     Active Substance: OFATUMUMAB
     Indication: Product used for unknown indication
     Dosage: 20 MG, QMO (BENEATH THE SKIN, USUALLY VIA INJECTION)
     Route: 058
     Dates: start: 20210301

REACTIONS (13)
  - Pneumonia [Recovering/Resolving]
  - Cough [Recovering/Resolving]
  - Abdominal tenderness [Unknown]
  - Anaemia [Unknown]
  - Tremor [Recovered/Resolved]
  - Hyperventilation [Unknown]
  - COVID-19 [Recovered/Resolved]
  - Lacrimation increased [Recovering/Resolving]
  - Sneezing [Recovering/Resolving]
  - Upper respiratory tract infection [Recovering/Resolving]
  - Nasopharyngitis [Recovering/Resolving]
  - Dyspnoea [Unknown]
  - Injection site pain [Unknown]

NARRATIVE: CASE EVENT DATE: 20210311
